FAERS Safety Report 8072396-3 (Version None)
Quarter: 2012Q1

REPORT INFORMATION
  Report Type: 
  Country: None (occurrence: None)
  Receive Date: 20120126
  Receipt Date: 20120125
  Transmission Date: 20120608
  Serious: No
  Sender: FDA-Public Use
  Company Number: US-BAYER-2012-008040

PATIENT
  Sex: Female

DRUGS (2)
  1. BEYAZ [Suspect]
     Indication: CONTRACEPTION
     Dosage: UNK, QD
     Route: 048
  2. BEYAZ [Suspect]
     Indication: ECZEMA

REACTIONS (1)
  - ECZEMA [None]
